FAERS Safety Report 9354536 (Version 2)
Quarter: 2013Q3

REPORT INFORMATION
  Report Type: Spontaneous
  Country: AT (occurrence: AT)
  Receive Date: 20130618
  Receipt Date: 20130711
  Transmission Date: 20140515
  Serious: Yes (Hospitalization)
  Sender: FDA-Public Use
  Company Number: AT-ASTRAZENECA-2013SE41922

PATIENT
  Age: 90 Year
  Sex: Female
  Weight: 52 kg

DRUGS (4)
  1. FASLODEX [Suspect]
     Indication: METASTASES TO BONE
     Dosage: MONTHLY
     Route: 030
     Dates: start: 2010
  2. XGEVA [Concomitant]
     Indication: METASTASES TO BONE
     Dosage: EVERY MONTH
  3. HYDAL [Concomitant]
     Indication: PAIN
  4. HALCION [Concomitant]
     Indication: INSOMNIA

REACTIONS (4)
  - Liver function test abnormal [Unknown]
  - Diarrhoea [Unknown]
  - Vomiting [Unknown]
  - Hot flush [Unknown]
